FAERS Safety Report 13363551 (Version 3)
Quarter: 2017Q2

REPORT INFORMATION
  Report Type: Report from Study
  Country: US (occurrence: US)
  Receive Date: 20170323
  Receipt Date: 20170501
  Transmission Date: 20170830
  Serious: Yes (Hospitalization, Other)
  Sender: FDA-Public Use
  Company Number: US-PFIZER INC-2016551978

PATIENT
  Age: 55 Year
  Sex: Female

DRUGS (1)
  1. IBRANCE [Suspect]
     Active Substance: PALBOCICLIB
     Indication: BREAST CANCER METASTATIC
     Dosage: 125 MG, CYCLIC, (DAILY DAY 1-21 THEN OFF 7-DAYS, REPEAT WITH 28 DAYS)
     Route: 048
     Dates: start: 20161028

REACTIONS (19)
  - Hip fracture [Unknown]
  - Femoral neck fracture [Unknown]
  - Eye pain [Recovering/Resolving]
  - White blood cell count decreased [Recovering/Resolving]
  - Facial paralysis [Recovering/Resolving]
  - Fatigue [Unknown]
  - Myalgia [Unknown]
  - Gait disturbance [Unknown]
  - Haemoglobin decreased [Recovering/Resolving]
  - Dizziness [Unknown]
  - Nausea [Unknown]
  - Asthenia [Unknown]
  - Drug dose omission [Unknown]
  - Decreased appetite [Unknown]
  - Pain in extremity [Unknown]
  - Back pain [Not Recovered/Not Resolved]
  - Spinal cord compression [Unknown]
  - Full blood count decreased [Unknown]
  - Groin pain [Unknown]

NARRATIVE: CASE EVENT DATE: 20161028
